FAERS Safety Report 21927706 (Version 1)
Quarter: 2023Q1

REPORT INFORMATION
  Report Type: Spontaneous
  Country: FR (occurrence: FR)
  Receive Date: 20230130
  Receipt Date: 20230130
  Transmission Date: 20230418
  Serious: Yes (Disabling)
  Sender: FDA-Public Use
  Company Number: None

PATIENT
  Age: 35 Year
  Sex: Male
  Weight: 95 kg

DRUGS (11)
  1. METHOTREXATE SODIUM [Suspect]
     Active Substance: METHOTREXATE SODIUM
     Indication: Chronic graft versus host disease
     Dosage: 10 MG, WEEKLY
  2. VALACYCLOVIR HYDROCHLORIDE [Suspect]
     Active Substance: VALACYCLOVIR HYDROCHLORIDE
     Indication: Opportunistic infection prophylaxis
     Dosage: 800 MG, ALTERNATE DAY 3 TIMES A WEEK
     Route: 048
  3. RUXOLITINIB [Suspect]
     Active Substance: RUXOLITINIB
     Indication: Chronic graft versus host disease
     Dosage: 10 MG, 2X/DAY (EVERY 12 HOURS)
     Route: 048
  4. PENICILLIN V BENZATHINE [Suspect]
     Active Substance: PENICILLIN V BENZATHINE
     Indication: Opportunistic infection prophylaxis
     Dosage: 1 *10*6.IU, 2X/DAY (EVERY 12 HOURS)
     Route: 048
  5. ENTECAVIR [Suspect]
     Active Substance: ENTECAVIR
     Indication: Opportunistic infection prophylaxis
     Dosage: 0.5 MG, 1X/DAY
     Route: 048
  6. SULFAMETHOXAZOLE [Suspect]
     Active Substance: SULFAMETHOXAZOLE
     Indication: Opportunistic infection prophylaxis
     Dosage: 500 MG, 2X/DAY (EVERY 12 HOURS)
     Route: 048
  7. PREDNISONE [Suspect]
     Active Substance: PREDNISONE
     Indication: Chronic graft versus host disease
     Dosage: 40 MG, 1X/DAY
     Route: 048
  8. TRIMETHOPRIM [Suspect]
     Active Substance: TRIMETHOPRIM
     Indication: Opportunistic infection prophylaxis
     Dosage: 160 MG, 2X/DAY (EVERY 12 HOURS)
     Route: 048
  9. POSACONAZOLE [Suspect]
     Active Substance: POSACONAZOLE
     Indication: Opportunistic infection prophylaxis
     Dosage: 200 MG, 3X/DAY (EVERY 8 HOURS)
     Route: 048
  10. AMITRIPTYLINE HYDROCHLORIDE [Suspect]
     Active Substance: AMITRIPTYLINE HYDROCHLORIDE
     Dosage: 10 DROP, 1X/DAY
     Route: 048
  11. PREVYMIS [Suspect]
     Active Substance: LETERMOVIR
     Indication: Opportunistic infection prophylaxis
     Dosage: 480 MG, 1X/DAY
     Route: 048

REACTIONS (2)
  - Optic neuropathy [Not Recovered/Not Resolved]
  - Off label use [Unknown]

NARRATIVE: CASE EVENT DATE: 20221213
